FAERS Safety Report 19023395 (Version 1)
Quarter: 2021Q1

REPORT INFORMATION
  Report Type: Report from Study
  Country: IT (occurrence: IT)
  Receive Date: 20210318
  Receipt Date: 20210318
  Transmission Date: 20210420
  Serious: Yes (Other)
  Sender: FDA-Public Use
  Company Number: IT-ADIENNEP-2021AD000190

PATIENT
  Age: 50 Year
  Sex: Male

DRUGS (2)
  1. FLUDARABINE [Suspect]
     Active Substance: FLUDARABINE PHOSPHATE
     Indication: ALLOGENIC STEM CELL TRANSPLANTATION
     Dosage: 40?50 MG/M2 FOR 4 DAYS, D?10 TO D?7 ()
  2. THIOTEPA. [Suspect]
     Active Substance: THIOTEPA
     Indication: ALLOGENIC STEM CELL TRANSPLANTATION
     Dosage: 3.75?5 MG/KG/DAY FOR 2 DAYS, D?10, D?9 ()

REACTIONS (1)
  - Febrile neutropenia [Unknown]
